FAERS Safety Report 5254480-2 (Version None)
Quarter: 2007Q1

REPORT INFORMATION
  Report Type: 
  Country: None (occurrence: None)
  Receive Date: 20070302
  Receipt Date: 20070220
  Transmission Date: 20070707
  Serious: Yes (Other)
  Sender: FDA-Public Use
  Company Number: FR-PFIZER INC-2006150816

PATIENT
  Sex: Male
  Weight: 73 kg

DRUGS (6)
  1. INSPRA [Suspect]
     Indication: PRIMARY HYPERALDOSTERONISM
     Route: 048
     Dates: start: 20060925, end: 20070207
  2. CORDARONE [Concomitant]
     Indication: ATRIAL FIBRILLATION
     Dosage: TEXT:2 DOSE FORMS
     Route: 048
  3. AMLODIPINE [Concomitant]
     Dosage: DAILY DOSE:10MG
     Route: 048
  4. OLMETEC [Concomitant]
     Dosage: DAILY DOSE:40MG
     Route: 048
  5. LOPRESSOR [Concomitant]
     Route: 048
     Dates: start: 20061202, end: 20061202
  6. GLICLAZIDE [Concomitant]
     Dosage: DAILY DOSE:60MG
     Route: 048
     Dates: start: 19960101

REACTIONS (2)
  - ATRIAL FIBRILLATION [None]
  - DIABETES MELLITUS INADEQUATE CONTROL [None]
